FAERS Safety Report 5954397-1 (Version None)
Quarter: 2008Q4

REPORT INFORMATION
  Report Type: 
  Country: None (occurrence: None)
  Receive Date: 20081117
  Receipt Date: 20080117
  Transmission Date: 20090506
  Serious: No
  Sender: FDA-Public Use
  Company Number: US-AMGEN-KDL258537

PATIENT
  Sex: Female

DRUGS (4)
  1. ENBREL [Suspect]
     Indication: RHEUMATOID ARTHRITIS
     Route: 058
     Dates: start: 20040101
  2. PLAQUENIL [Concomitant]
     Route: 048
     Dates: start: 19920101
  3. GOLD [Concomitant]
     Route: 048
     Dates: start: 19950101
  4. ARAVA [Concomitant]
     Route: 048
     Dates: start: 20060101

REACTIONS (1)
  - INJECTION SITE PAIN [None]
